FAERS Safety Report 13185155 (Version 1)
Quarter: 2017Q1

REPORT INFORMATION
  Report Type: Spontaneous
  Country: HR (occurrence: HR)
  Receive Date: 20170203
  Receipt Date: 20170203
  Transmission Date: 20170428
  Serious: Yes (Hospitalization, Other)
  Sender: FDA-Public Use
  Company Number: HR-009507513-1701HRV014383

PATIENT
  Age: 4 Year
  Sex: Female

DRUGS (1)
  1. AERIUS [Suspect]
     Active Substance: DESLORATADINE
     Dosage: 45 MG,
     Route: 048
     Dates: start: 20160401

REACTIONS (3)
  - Accidental overdose [Unknown]
  - Altered state of consciousness [Unknown]
  - Accidental exposure to product by child [Unknown]

NARRATIVE: CASE EVENT DATE: 20160401
